FAERS Safety Report 26193165 (Version 1)
Quarter: 2025Q4

REPORT INFORMATION
  Report Type: Spontaneous
  Country: CA (occurrence: CA)
  Receive Date: 20251223
  Receipt Date: 20251223
  Transmission Date: 20260117
  Serious: Yes (Other)
  Sender: APOTEX
  Company Number: CA-PGRTD-001158185

PATIENT
  Age: 19 Year

DRUGS (3)
  1. DIPHENHYDRAMINE [Suspect]
     Active Substance: DIPHENHYDRAMINE
     Indication: Unevaluable event
     Route: 065
  2. OCREVUS [Suspect]
     Active Substance: OCRELIZUMAB
     Indication: Primary progressive multiple sclerosis
     Dosage: 1 EVERY 14 DAYS
  3. VICKS VAPORUB [Suspect]
     Active Substance: CAMPHOR (SYNTHETIC)\EUCALYPTUS OIL\MENTHOL
     Indication: Product used for unknown indication
     Route: 065

REACTIONS (8)
  - Fall [Unknown]
  - Hip fracture [Unknown]
  - Influenza [Unknown]
  - Off label use [Unknown]
  - Arthritis [Unknown]
  - Bone disorder [Unknown]
  - Somnolence [Unknown]
  - Fatigue [Unknown]
